FAERS Safety Report 7943652-1 (Version None)
Quarter: 2011Q4

REPORT INFORMATION
  Report Type: 
  Country: None (occurrence: None)
  Receive Date: 20111122
  Receipt Date: 20110706
  Transmission Date: 20120403
  Serious: No
  Sender: FDA-Public Use
  Company Number: PHHY2011US60640

PATIENT
  Age: 52 Year
  Sex: Male

DRUGS (2)
  1. SENNA (SENNA, SENNA ALEXANDRINA) 06/22/2011 TO UNK [Concomitant]
  2. GILENYA [Suspect]
     Indication: MULTIPLE SCLEROSIS
     Dosage: 0.5 MG, QD, ORAL
     Route: 048
     Dates: start: 20110630

REACTIONS (1)
  - DRY MOUTH [None]
